FAERS Safety Report 12845191 (Version 2)
Quarter: 2017Q3

REPORT INFORMATION
  Report Type: Spontaneous
  Country: CA (occurrence: CA)
  Receive Date: 20161013
  Receipt Date: 20170809
  Transmission Date: 20171127
  Serious: Yes (Hospitalization, Other)
  Sender: FDA-Public Use
  Company Number: CA-PFIZER INC-2016469514

PATIENT
  Age: 60 Year
  Sex: Male

DRUGS (20)
  1. SLOW K [Suspect]
     Active Substance: POTASSIUM CHLORIDE
     Dosage: 600 MG, UNK
     Route: 048
  2. ADVAIR HFA [Concomitant]
     Active Substance: FLUTICASONE PROPIONATE\SALMETEROL XINAFOATE
     Dosage: UNK
     Route: 065
  3. VENTOLIN [Concomitant]
     Active Substance: ALBUTEROL SULFATE
     Indication: ASTHMA
  4. CLONAZEPAM. [Concomitant]
     Active Substance: CLONAZEPAM
     Dosage: UNK
     Route: 065
  5. AIROMIR /00139501/ [Concomitant]
     Active Substance: ALBUTEROL
     Indication: COUGH
  6. SINGULAIR [Concomitant]
     Active Substance: MONTELUKAST SODIUM
     Dosage: UNK
     Route: 065
  7. SPIRIVA [Concomitant]
     Active Substance: TIOTROPIUM BROMIDE MONOHYDRATE
     Dosage: UNK
  8. PANTOPRAZOLE [Suspect]
     Active Substance: PANTOPRAZOLE
     Indication: GASTROINTESTINAL DISORDER
     Dosage: 40 MG, UNK
     Route: 048
  9. XOLAIR [Suspect]
     Active Substance: OMALIZUMAB
     Indication: ASTHMA
     Dosage: UNK
     Route: 058
  10. AIROMIR /00139501/ [Concomitant]
     Active Substance: ALBUTEROL
     Indication: DYSPNOEA
  11. AIROMIR /00139501/ [Concomitant]
     Active Substance: ALBUTEROL
     Indication: ASTHMA
  12. XOLAIR [Suspect]
     Active Substance: OMALIZUMAB
     Indication: ASTHMA
     Dosage: 300 MG, CYCLIC(ONCE PER TWO WEEKS)
     Route: 058
  13. FELODIPINE. [Concomitant]
     Active Substance: FELODIPINE
     Dosage: UNK
     Route: 065
  14. LIPITOR [Concomitant]
     Active Substance: ATORVASTATIN CALCIUM
     Dosage: UNK
     Route: 065
  15. VENTOLIN [Concomitant]
     Active Substance: ALBUTEROL SULFATE
     Indication: DYSPNOEA
     Dosage: UNK
  16. VENTOLIN [Concomitant]
     Active Substance: ALBUTEROL SULFATE
     Indication: COUGH
  17. XOLAIR [Suspect]
     Active Substance: OMALIZUMAB
     Dosage: 300 MG, UNK
     Route: 058
  18. CARBAMAZEPINE. [Concomitant]
     Active Substance: CARBAMAZEPINE
     Dosage: UNK
     Route: 065
  19. NITRAZEPAM [Concomitant]
     Active Substance: NITRAZEPAM
     Dosage: UNK
     Route: 065
  20. PANTOPRAZOLE SODIUM SESQUIHYDRATE [Concomitant]
     Active Substance: PANTOPRAZOLE SODIUM
     Dosage: UNK
     Route: 065

REACTIONS (28)
  - Heart rate increased [Not Recovered/Not Resolved]
  - Pulmonary function test decreased [Not Recovered/Not Resolved]
  - Hip fracture [Not Recovered/Not Resolved]
  - Hypertension [Not Recovered/Not Resolved]
  - Cough [Not Recovered/Not Resolved]
  - Condition aggravated [Not Recovered/Not Resolved]
  - Fall [Not Recovered/Not Resolved]
  - Respiratory rate increased [Not Recovered/Not Resolved]
  - Restrictive pulmonary disease [Not Recovered/Not Resolved]
  - Seizure [Not Recovered/Not Resolved]
  - Nasopharyngitis [Not Recovered/Not Resolved]
  - Malaise [Not Recovered/Not Resolved]
  - Dyspnoea [Not Recovered/Not Resolved]
  - Kidney infection [Not Recovered/Not Resolved]
  - Ligament sprain [Not Recovered/Not Resolved]
  - Blood pressure increased [Not Recovered/Not Resolved]
  - Blood pressure fluctuation [Not Recovered/Not Resolved]
  - Wheezing [Not Recovered/Not Resolved]
  - Influenza [Not Recovered/Not Resolved]
  - Arthralgia [Not Recovered/Not Resolved]
  - Dizziness [Not Recovered/Not Resolved]
  - Forced expiratory volume decreased [Not Recovered/Not Resolved]
  - Headache [Not Recovered/Not Resolved]
  - Respiratory distress [Not Recovered/Not Resolved]
  - Bronchial hyperreactivity [Not Recovered/Not Resolved]
  - Viral upper respiratory tract infection [Not Recovered/Not Resolved]
  - Asthma [Not Recovered/Not Resolved]
  - Oxygen saturation decreased [Not Recovered/Not Resolved]
